FAERS Safety Report 6252036-6 (Version None)
Quarter: 2009Q2

REPORT INFORMATION
  Report Type: 
  Country: None (occurrence: None)
  Receive Date: 20090630
  Receipt Date: 20050129
  Transmission Date: 20091009
  Serious: Yes (Hospitalization)
  Sender: FDA-Public Use
  Company Number: US-ROCHE-638668

PATIENT
  Sex: Male

DRUGS (7)
  1. ENFUVIRTIDE [Suspect]
     Route: 065
     Dates: start: 20050111, end: 20060101
  2. APTIVUS [Concomitant]
     Dates: start: 20050111, end: 20060101
  3. NORVIR [Concomitant]
     Dates: start: 20050111, end: 20060704
  4. TRIZIVIR [Concomitant]
     Dates: start: 20050111, end: 20060704
  5. VIREAD [Concomitant]
     Dates: start: 20050111, end: 20060704
  6. CEFTRIAXONE [Concomitant]
     Dates: start: 20050101, end: 20050201
  7. DOXYCYCLINE [Concomitant]
     Dates: start: 20050101, end: 20050201

REACTIONS (2)
  - BRONCHITIS [None]
  - HIV INFECTION [None]
